FAERS Safety Report 6140000-7 (Version None)
Quarter: 2009Q1

REPORT INFORMATION
  Report Type: 
  Country: None (occurrence: None)
  Receive Date: 20090324
  Receipt Date: 20090317
  Transmission Date: 20090719
  Serious: Yes (Other)
  Sender: FDA-Public Use
  Company Number: 041480

PATIENT
  Age: 62 Year
  Sex: Female

DRUGS (3)
  1. BISOPROLOL FUMARATE [Suspect]
     Indication: HYPERTENSION
     Dosage: 20 MG (4 IN 1 D)
     Dates: start: 20090120
  2. AMITRIPTYLINE [Concomitant]
  3. OMEPRAZOLE [Concomitant]

REACTIONS (1)
  - DRUG INEFFECTIVE [None]
